FAERS Safety Report 9234501 (Version 1)
Quarter: 2013Q2

REPORT INFORMATION
  Report Type: Spontaneous
  Country: US (occurrence: US)
  Receive Date: 20130416
  Receipt Date: 20130416
  Transmission Date: 20140414
  Serious: No
  Sender: FDA-Public Use
  Company Number: US-BANPHARM-20120259

PATIENT
  Age: 61 Year
  Sex: Female
  Weight: 136.05 kg

DRUGS (1)
  1. NAPROXEN SODIUM 220MG [Suspect]
     Indication: ARTHRITIS
     Dosage: 220 MG, BID,
     Route: 048
     Dates: start: 20121001, end: 20121007

REACTIONS (2)
  - Blister [Not Recovered/Not Resolved]
  - Pain [Not Recovered/Not Resolved]
